FAERS Safety Report 9580212 (Version 1)
Quarter: 2013Q3

REPORT INFORMATION
  Report Type: Spontaneous
  Country: IN (occurrence: None)
  Receive Date: 20130930
  Receipt Date: 20130930
  Transmission Date: 20140515
  Serious: Yes (Life-Threatening, Hospitalization)
  Sender: FDA-Public Use
  Company Number: CMB-00142

PATIENT
  Age: 19 Year
  Sex: Male

DRUGS (1)
  1. DICLOFENAC SODIUM [Suspect]
     Route: 030

REACTIONS (4)
  - Gas gangrene [None]
  - Iatrogenic infection [None]
  - Clostridial infection [None]
  - Gait disturbance [None]
